FAERS Safety Report 5158812-5 (Version None)
Quarter: 2006Q4

REPORT INFORMATION
  Report Type: 
  Country: None (occurrence: None)
  Receive Date: 20061128
  Receipt Date: 20061106
  Transmission Date: 20070319
  Serious: Yes (Hospitalization, Other)
  Sender: FDA-Public Use
  Company Number: US-ELI_LILLY_AND_COMPANY-US200611001152

PATIENT
  Age: 78 Year
  Sex: Female

DRUGS (6)
  1. FORTEO [Suspect]
     Indication: OSTEOPOROSIS
     Dosage: UNK, UNK
     Dates: start: 20060921
  2. WARFARIN SODIUM [Concomitant]
     Indication: BLOOD DISORDER
  3. ANTIHYPERTENSIVES [Concomitant]
     Indication: BLOOD PRESSURE
  4. LIPITOR [Concomitant]
     Indication: BLOOD CHOLESTEROL
  5. CALCIUM WITH VITAMIN D [Concomitant]
  6. FOSAMAX                                 /ITA/ [Concomitant]
     Dates: end: 20060101

REACTIONS (5)
  - ARTHRALGIA [None]
  - BALANCE DISORDER [None]
  - FALL [None]
  - PELVIC FRACTURE [None]
  - PHARMACEUTICAL PRODUCT COMPLAINT [None]
